FAERS Safety Report 12646899 (Version 1)
Quarter: 2016Q3

REPORT INFORMATION
  Report Type: Spontaneous
  Country: US (occurrence: None)
  Receive Date: 20160811
  Receipt Date: 20160811
  Transmission Date: 20161109
  Serious: Yes (Other)
  Sender: FDA-Public Use
  Company Number: None

PATIENT
  Age: 53 Year
  Sex: Female
  Weight: 53.52 kg

DRUGS (1)
  1. PROGESTERONE BANNER LIFE SCIENC, 100 MG [Suspect]
     Active Substance: PROGESTERONE
     Indication: MENOPAUSE
     Route: 048
     Dates: start: 20160711, end: 20160809

REACTIONS (13)
  - Night sweats [None]
  - Fatigue [None]
  - Lip dry [None]
  - Muscular weakness [None]
  - Nasal dryness [None]
  - Hemiparesis [None]
  - Dry eye [None]
  - Pyrexia [None]
  - Vision blurred [None]
  - Product substitution issue [None]
  - Eye irritation [None]
  - Middle insomnia [None]
  - Chills [None]

NARRATIVE: CASE EVENT DATE: 20160809
